FAERS Safety Report 16195299 (Version 3)
Quarter: 2019Q2

REPORT INFORMATION
  Report Type: Spontaneous
  Country: None (occurrence: US)
  Receive Date: 20190415
  Receipt Date: 20190620
  Transmission Date: 20190711
  Serious: Yes (Hospitalization, Other)
  Sender: FDA-Public Use
  Company Number: US-BIOGEN-2011BI025904

PATIENT
  Age: 55 Year
  Sex: Male

DRUGS (4)
  1. AVONEX [Suspect]
     Active Substance: INTERFERON BETA-1A
     Indication: MULTIPLE SCLEROSIS
     Route: 030
     Dates: start: 20020214, end: 2003
  2. AVONEX [Suspect]
     Active Substance: INTERFERON BETA-1A
     Route: 030
     Dates: start: 2002
  3. OXCARBAZEPINE. [Concomitant]
     Active Substance: OXCARBAZEPINE
     Indication: MUSCLE SPASMS
     Route: 048
     Dates: start: 2001
  4. AVONEX [Suspect]
     Active Substance: INTERFERON BETA-1A
     Route: 030
     Dates: start: 2003

REACTIONS (13)
  - Coronary artery occlusion [Recovered/Resolved]
  - Tooth disorder [Recovered/Resolved]
  - Fall [Recovered/Resolved]
  - Depression [Unknown]
  - Rib fracture [Not Recovered/Not Resolved]
  - Urinary retention [Unknown]
  - Pulmonary oedema [Recovered/Resolved]
  - Cataract [Recovered/Resolved]
  - Back disorder [Unknown]
  - Coronary artery disease [Recovered/Resolved]
  - Influenza like illness [Recovered/Resolved]
  - Muscle spasms [Not Recovered/Not Resolved]
  - Multiple sclerosis relapse [Recovered/Resolved]

NARRATIVE: CASE EVENT DATE: 2002
